FAERS Safety Report 5107713-7 (Version None)
Quarter: 2006Q3

REPORT INFORMATION
  Report Type: 
  Country: None (occurrence: None)
  Receive Date: 20060919
  Receipt Date: 20060728
  Transmission Date: 20061208
  Serious: Yes (Life-Threatening, Other)
  Sender: FDA-Public Use
  Company Number: JP-ABBOTT-06P-087-0339532-00

PATIENT
  Sex: Female

DRUGS (12)
  1. SEVOFLURANE [Suspect]
     Indication: MAINTENANCE OF ANAESTHESIA
     Route: 055
     Dates: start: 20060607, end: 20060607
  2. PREDNISOLONE [Concomitant]
     Indication: ASTHMA
     Route: 048
     Dates: start: 19950101
  3. PROCATEROL HCL [Concomitant]
     Indication: ASTHMA
     Route: 048
     Dates: start: 19950101
  4. AMLODIPINE BESYLATE [Concomitant]
     Indication: HYPERTENSION
     Route: 048
     Dates: start: 20050101
  5. SALMETEROL XINAFOATE [Concomitant]
     Indication: ASTHMA
     Route: 055
     Dates: start: 19950101
  6. FLUTICASONE PROPIONATE [Concomitant]
     Indication: ASTHMA
     Route: 055
     Dates: start: 19950101
  7. LIDOCAINE [Concomitant]
     Indication: INDUCTION OF ANAESTHESIA
     Route: 042
     Dates: start: 20060607, end: 20060607
  8. PROPOFOL [Concomitant]
     Indication: INDUCTION OF ANAESTHESIA
     Route: 042
     Dates: start: 20060607, end: 20060607
  9. VECURONIUM BROMIDE [Concomitant]
     Indication: MUSCLE RELAXANT THERAPY
     Route: 042
     Dates: start: 20060607, end: 20060607
  10. FENTANYL [Concomitant]
     Indication: INDUCTION OF ANAESTHESIA
     Route: 042
     Dates: start: 20060607, end: 20060607
  11. CEFOTIAM HYDROCHLORIDE [Concomitant]
     Indication: INFECTION PROPHYLAXIS
     Route: 041
     Dates: start: 20060607, end: 20060607
  12. OXYGEN [Concomitant]
     Indication: MAINTENANCE OF ANAESTHESIA
     Dates: start: 20060607, end: 20060607

REACTIONS (9)
  - ANAPHYLACTIC SHOCK [None]
  - ARTERIOSPASM CORONARY [None]
  - ATRIOVENTRICULAR BLOCK THIRD DEGREE [None]
  - BLOOD POTASSIUM DECREASED [None]
  - BLOOD PRESSURE IMMEASURABLE [None]
  - ELECTROCARDIOGRAM ST SEGMENT DEPRESSION [None]
  - ELECTROCARDIOGRAM ST SEGMENT ELEVATION [None]
  - HYPOVENTILATION [None]
  - OXYGEN SATURATION DECREASED [None]
